FAERS Safety Report 6087585-7 (Version None)
Quarter: 2009Q1

REPORT INFORMATION
  Report Type: 
  Country: None (occurrence: None)
  Receive Date: 20090223
  Receipt Date: 20090217
  Transmission Date: 20090719
  Serious: Yes (Hospitalization)
  Sender: FDA-Public Use
  Company Number: US-JNJFOC-20090204961

PATIENT
  Sex: Male
  Weight: 73.94 kg

DRUGS (4)
  1. FENTANYL TRANSDERMAL SYSTEM [Suspect]
     Indication: BACK PAIN
     Route: 062
  2. NEURONTIN [Concomitant]
     Indication: PAIN IN EXTREMITY
     Dosage: 1800/TABLET/600MG/TWICE DAILY
     Route: 048
  3. ACTONEL [Concomitant]
     Indication: ARTHRITIS
     Dosage: TABLET/WEEKLY/ORALLY
     Route: 048
  4. SEROQUEL [Concomitant]
     Indication: PSYCHOTIC DISORDER
     Dosage: 400MG/TABLET/200 MG/2 TABLETS NIGHTLY/ORALLY
     Route: 048

REACTIONS (3)
  - HYPERTENSION [None]
  - LUNG NEOPLASM MALIGNANT [None]
  - PNEUMONIA [None]
